FAERS Safety Report 21936467 (Version 1)
Quarter: 2023Q1

REPORT INFORMATION
  Report Type: Report from Study
  Country: US (occurrence: US)
  Receive Date: 20230201
  Receipt Date: 20230201
  Transmission Date: 20230418
  Serious: Yes (Death, Other)
  Sender: FDA-Public Use
  Company Number: US-INCYTE CORPORATION-2021IN000246

PATIENT

DRUGS (2)
  1. PEMIGATINIB [Suspect]
     Active Substance: PEMIGATINIB
     Indication: Bile duct cancer
     Dosage: 13.5 MILLIGRAM
     Route: 065
     Dates: start: 20201221
  2. PEMIGATINIB [Suspect]
     Active Substance: PEMIGATINIB
     Dosage: 13.5MG (14 DAYS ON / 7 DAYS OFF)
     Route: 065
     Dates: start: 20201227

REACTIONS (10)
  - Death [Fatal]
  - Feeling abnormal [Unknown]
  - Fluid intake reduced [Unknown]
  - Hypophagia [Unknown]
  - Decreased appetite [Unknown]
  - Asthenia [Unknown]
  - Fatigue [Unknown]
  - Nausea [Unknown]
  - Constipation [Unknown]
  - Stomatitis [Unknown]

NARRATIVE: CASE EVENT DATE: 20210208
